FAERS Safety Report 9701206 (Version 1)
Quarter: 2013Q4

REPORT INFORMATION
  Report Type: Spontaneous
  Country: US (occurrence: US)
  Receive Date: 20131121
  Receipt Date: 20131121
  Transmission Date: 20140711
  Serious: No
  Sender: FDA-Public Use
  Company Number: US-GILEAD-2008-0016051

PATIENT
  Sex: Female
  Weight: 117.93 kg

DRUGS (15)
  1. LETAIRIS [Suspect]
     Indication: PULMONARY ARTERIAL HYPERTENSION
     Route: 048
     Dates: start: 20080229
  2. ZOCOR [Concomitant]
     Route: 048
  3. LASIX [Concomitant]
     Route: 048
  4. COUMADIN [Concomitant]
     Route: 048
  5. SINEMET [Concomitant]
     Route: 048
  6. MONOPRIL [Concomitant]
     Route: 048
  7. GLUCOPHAGE [Concomitant]
     Route: 048
  8. CELEXA [Concomitant]
     Route: 048
  9. CALCIUM [Concomitant]
     Route: 048
  10. VITAMIN C [Concomitant]
     Route: 048
  11. VITAMIN D [Concomitant]
     Route: 048
  12. FISH OIL [Concomitant]
     Route: 048
  13. ACTOS [Concomitant]
     Route: 048
  14. VITAMIN B-12 [Concomitant]
     Route: 048
  15. MAGNESIUM [Concomitant]
     Route: 048

REACTIONS (1)
  - Local swelling [Unknown]
